FAERS Safety Report 25445594 (Version 2)
Quarter: 2025Q2

REPORT INFORMATION
  Report Type: Spontaneous
  Country: CN (occurrence: CN)
  Receive Date: 20250617
  Receipt Date: 20250624
  Transmission Date: 20250717
  Serious: Yes (Hospitalization)
  Sender: PFIZER
  Company Number: CN-PFIZER INC-PV202500070913

PATIENT
  Age: 25 Year
  Sex: Male
  Weight: 70 kg

DRUGS (3)
  1. CYTARABINE [Suspect]
     Active Substance: CYTARABINE
     Indication: Acute lymphocytic leukaemia
     Dosage: 3000 MG, 2X/DAY
     Route: 041
     Dates: start: 20250529, end: 20250530
  2. METHOTREXATE SODIUM [Suspect]
     Active Substance: METHOTREXATE SODIUM
     Indication: Acute lymphocytic leukaemia
     Dosage: 2 G, 1X/DAY
     Route: 041
     Dates: start: 20250528, end: 20250528
  3. VENETOCLAX [Concomitant]
     Active Substance: VENETOCLAX
     Indication: Acute lymphocytic leukaemia
     Dates: start: 20250528, end: 20250610

REACTIONS (3)
  - Suspected drug-induced liver injury [Recovering/Resolving]
  - Hepatic enzyme increased [Recovering/Resolving]
  - Off label use [Unknown]

NARRATIVE: CASE EVENT DATE: 20250528
